FAERS Safety Report 20655875 (Version 1)
Quarter: 2022Q1

REPORT INFORMATION
  Report Type: Report from Study
  Country: DE (occurrence: DE)
  Receive Date: 20220330
  Receipt Date: 20220330
  Transmission Date: 20220423
  Serious: Yes (Hospitalization)
  Sender: FDA-Public Use
  Company Number: DE-EMA-DD-20220310-pawar_p-105736

PATIENT
  Age: 62 Year
  Sex: Female

DRUGS (13)
  1. METHOTREXATE [Suspect]
     Active Substance: METHOTREXATE
     Indication: Rheumatoid arthritis
     Dosage: 20 MG, 1 WEEK
     Route: 065
  2. METHOTREXATE [Suspect]
     Active Substance: METHOTREXATE
     Dosage: 17.5 MG
     Route: 065
  3. METHOTREXATE [Suspect]
     Active Substance: METHOTREXATE
     Dosage: 15 MG
     Route: 065
  4. HYDROXYCHLOROQUINE [Suspect]
     Active Substance: HYDROXYCHLOROQUINE
     Indication: Rheumatoid arthritis
     Dosage: 200 MG
     Route: 065
  5. HYDROXYCHLOROQUINE [Suspect]
     Active Substance: HYDROXYCHLOROQUINE
     Dosage: 300 MG
     Route: 065
  6. ETANERCEPT [Suspect]
     Active Substance: ETANERCEPT
     Indication: Rheumatoid arthritis
     Dosage: 50 MG, DURATION: 5 MONTHS
     Route: 065
     Dates: start: 201606, end: 201611
  7. ETANERCEPT [Suspect]
     Active Substance: ETANERCEPT
     Dosage: 50 MG, DURATION: 4 MONTHS
     Route: 065
     Dates: start: 201607, end: 201611
  8. ETANERCEPT [Suspect]
     Active Substance: ETANERCEPT
     Dosage: 50 MG/7 DAYS, DURATION: 1 MONTH
     Route: 065
     Dates: start: 20201007, end: 20201124
  9. ETANERCEPT [Suspect]
     Active Substance: ETANERCEPT
     Dosage: 50 MG, DURATION: 1 YEAR
     Route: 065
     Dates: start: 201709, end: 201908
  10. ENBREL [Suspect]
     Active Substance: ETANERCEPT
     Indication: Rheumatoid arthritis
     Dosage: 50 MG, DURATION: 1 YEAR
     Route: 065
     Dates: start: 201403, end: 201509
  11. ORENCIA [Suspect]
     Active Substance: ABATACEPT
     Indication: Rheumatoid arthritis
     Dosage: 125 MG, DURATION: 5 MONTHS
     Route: 065
     Dates: start: 201910, end: 202003
  12. ORENCIA [Suspect]
     Active Substance: ABATACEPT
     Dosage: 125 MG, 1 WEEK, DURATION: 5 MONTHS
     Route: 065
     Dates: end: 20200316
  13. TOCILIZUMAB [Suspect]
     Active Substance: TOCILIZUMAB
     Indication: Rheumatoid arthritis
     Dosage: PRE-FILLED SYRINGE, 162 MG. DURATION: 4 MONTHS
     Route: 058
     Dates: start: 201510, end: 201602

REACTIONS (2)
  - Invasive breast carcinoma [Not Recovered/Not Resolved]
  - Oral mucosa erosion [Unknown]

NARRATIVE: CASE EVENT DATE: 20201101
